FAERS Safety Report 25928683 (Version 1)
Quarter: 2025Q4

REPORT INFORMATION
  Report Type: Spontaneous
  Country: TR (occurrence: TR)
  Receive Date: 20251016
  Receipt Date: 20251016
  Transmission Date: 20260117
  Serious: Yes (Other)
  Sender: AMGEN
  Company Number: TR-AMGEN-TURSP2025203401

PATIENT

DRUGS (3)
  1. ETANERCEPT [Suspect]
     Active Substance: ETANERCEPT
     Indication: Juvenile idiopathic arthritis
     Dosage: UNK
     Route: 065
  2. ADALIMUMAB [Suspect]
     Active Substance: ADALIMUMAB
     Indication: Juvenile idiopathic arthritis
     Dosage: UNK
     Route: 065
  3. METHOTREXATE [Concomitant]
     Active Substance: METHOTREXATE
     Indication: Juvenile idiopathic arthritis

REACTIONS (3)
  - Uveitis [Unknown]
  - Juvenile idiopathic arthritis [Unknown]
  - Therapy partial responder [Unknown]
